FAERS Safety Report 8012823-0 (Version None)
Quarter: 2011Q4

REPORT INFORMATION
  Report Type: 
  Country: None (occurrence: None)
  Receive Date: 20111229
  Receipt Date: 20111219
  Transmission Date: 20120403
  Serious: Yes (Congenital Anomaly)
  Sender: FDA-Public Use
  Company Number: JP-BRISTOL-MYERS SQUIBB COMPANY-16252223

PATIENT
  Age: 7 Week
  Sex: Female

DRUGS (1)
  1. ABILIFY [Suspect]
     Dosage: 18MG TRANSMAMMARY ALSO TAKEN 31AUG11-16SEP11(17DAY)
     Route: 064
     Dates: end: 20110831

REACTIONS (2)
  - VENTRICULAR SEPTAL DEFECT [None]
  - EXPOSURE DURING BREAST FEEDING [None]
